FAERS Safety Report 8108195-3 (Version None)
Quarter: 2011Q4

REPORT INFORMATION
  Report Type: 
  Country: None (occurrence: None)
  Receive Date: 20111223
  Receipt Date: 20110801
  Transmission Date: 20120403
  Serious: Yes (Other)
  Sender: FDA-Public Use
  Company Number: PHHY2011US50830

PATIENT
  Age: 25 Year
  Sex: Male

DRUGS (6)
  1. ABILIFY [Concomitant]
  2. CLOZARIL [Suspect]
     Indication: SCHIZOPHRENIA
     Dosage: 300 MG, (100 MG QAM AND 200 MG HS) ; 300 MG,(100 MG QAM AND 200 MG HS),ORAL ; 350 MG
     Route: 048
     Dates: start: 20110513
  3. CLOZARIL [Suspect]
     Indication: PSYCHOTIC DISORDER
     Dosage: 300 MG, (100 MG QAM AND 200 MG HS) ; 300 MG,(100 MG QAM AND 200 MG HS),ORAL ; 350 MG
     Route: 048
     Dates: start: 20110513
  4. ZYPREXA [Concomitant]
  5. INVEGA (PALIPERIDONE) (PALIPERIDONE) [Concomitant]
  6. RISPERIDONE [Concomitant]

REACTIONS (11)
  - URINE COLOUR ABNORMAL [None]
  - C-REACTIVE PROTEIN INCREASED [None]
  - CHEST PAIN [None]
  - TACHYCARDIA [None]
  - DEHYDRATION [None]
  - PSYCHOTIC DISORDER [None]
  - PALPITATIONS [None]
  - SUICIDAL IDEATION [None]
  - FATIGUE [None]
  - CHEST DISCOMFORT [None]
  - MYOCARDITIS [None]
